FAERS Safety Report 7421972-7 (Version None)
Quarter: 2011Q2

REPORT INFORMATION
  Report Type: 
  Country: None (occurrence: None)
  Receive Date: 20110418
  Receipt Date: 20110413
  Transmission Date: 20111010
  Serious: Yes (Death, Other)
  Sender: FDA-Public Use
  Company Number: US-ASTRAZENECA-2011SE21417

PATIENT
  Age: 92 Year
  Sex: Female

DRUGS (1)
  1. SEROQUEL [Suspect]
     Route: 048

REACTIONS (5)
  - PNEUMONIA [None]
  - FALL [None]
  - DEMENTIA ALZHEIMER'S TYPE [None]
  - RIB FRACTURE [None]
  - TRAUMATIC LUNG INJURY [None]
